FAERS Safety Report 4932943-4 (Version None)
Quarter: 2006Q1

REPORT INFORMATION
  Report Type: 
  Country: None (occurrence: None)
  Receive Date: 20060301
  Receipt Date: 20060301
  Transmission Date: 20060701
  Serious: Yes (Other)
  Sender: FDA-Public Use
  Company Number: None

PATIENT
  Age: 58 Year
  Sex: Male
  Weight: 78.9259 kg

DRUGS (2)
  1. GABAPENTIN [Suspect]
     Indication: NEURALGIA
     Dosage: 800 MG  3 TIMES DAILY  PO
     Route: 048
     Dates: start: 20051007, end: 20060115
  2. GABAPENTIN [Suspect]
     Indication: NEURALGIA
     Dosage: 800MG  3 TIMES DAILY   PO
     Route: 048
     Dates: start: 20060112, end: 20060228

REACTIONS (8)
  - DRUG WITHDRAWAL SYNDROME [None]
  - FATIGUE [None]
  - MALAISE [None]
  - PHARMACEUTICAL PRODUCT COMPLAINT [None]
  - POOR QUALITY DRUG ADMINISTERED [None]
  - SOMNOLENCE [None]
  - SPEECH DISORDER [None]
  - TREATMENT NONCOMPLIANCE [None]
